FAERS Safety Report 10197693 (Version 1)
Quarter: 2014Q2

REPORT INFORMATION
  Report Type: Spontaneous
  Country: US (occurrence: US)
  Receive Date: 20140527
  Receipt Date: 20140527
  Transmission Date: 20141212
  Serious: No
  Sender: FDA-Public Use
  Company Number: US-BRISTOL-MYERS SQUIBB COMPANY-19022672

PATIENT
  Age: 76 Year
  Sex: Female
  Weight: 47.62 kg

DRUGS (8)
  1. PRAVACHOL [Suspect]
     Dosage: FORMULATION: PRAVACHOL 80MG
     Dates: start: 200808
  2. PLAVIX [Suspect]
     Dosage: REDUCED TO 75MG
     Dates: start: 200808
  3. ASPIRIN [Concomitant]
     Dosage: IN THE MORNINGS
  4. LISINOPRIL [Concomitant]
     Dosage: IN THE MORNINGS
  5. ISOSORBIDE MONONITRATE [Concomitant]
     Dosage: IN THE MORNINGS
  6. COREG [Concomitant]
     Dosage: CR;?IN THE EVENINGS
  7. TRICOR [Concomitant]
     Dosage: IN THE EVENINGS
  8. VITAMINS [Concomitant]
     Dosage: IN THE EVENINGS

REACTIONS (1)
  - Diarrhoea [Unknown]
